FAERS Safety Report 14274137 (Version 1)
Quarter: 2017Q4

REPORT INFORMATION
  Report Type: Spontaneous
  Country: US (occurrence: US)
  Receive Date: 20171211
  Receipt Date: 20171211
  Transmission Date: 20180321
  Serious: Yes (Life-Threatening, Hospitalization, Other)
  Sender: FDA-Public Use
  Company Number: US-OTSUKA-2015_011715

PATIENT

DRUGS (2)
  1. ABILIFY [Suspect]
     Active Substance: ARIPIPRAZOLE
     Indication: DEPRESSION
     Dosage: 2 MG, UNK
     Route: 065
     Dates: start: 2013, end: 2013
  2. ABILIFY [Suspect]
     Active Substance: ARIPIPRAZOLE
     Dosage: 5 MG, UNK
     Route: 065

REACTIONS (9)
  - Abnormal dreams [Unknown]
  - Tremor [Recovered/Resolved]
  - Hypersensitivity [Unknown]
  - Fall [Recovered/Resolved]
  - Dysstasia [Recovered/Resolved]
  - Muscle rigidity [Recovered/Resolved]
  - Haemorrhage [Unknown]
  - Gait disturbance [Recovered/Resolved]
  - Hallucination [Unknown]

NARRATIVE: CASE EVENT DATE: 2013
